FAERS Safety Report 14918144 (Version 1)
Quarter: 2018Q2

REPORT INFORMATION
  Report Type: Spontaneous
  Country: FR (occurrence: FR)
  Receive Date: 20180521
  Receipt Date: 20180521
  Transmission Date: 20180711
  Serious: Yes (Other)
  Sender: FDA-Public Use
  Company Number: FR-MERCK KGAA-2048127

PATIENT
  Age: 60 Year
  Sex: Female

DRUGS (1)
  1. NOVOTHYROX [Suspect]
     Active Substance: LEVOTHYROXINE SODIUM
     Indication: PRODUCT USED FOR UNKNOWN INDICATION

REACTIONS (19)
  - Fatigue [None]
  - Dyspepsia [None]
  - Social avoidant behaviour [None]
  - Headache [None]
  - Arthralgia [None]
  - Sleep disorder [None]
  - Mental impairment [None]
  - Impatience [None]
  - Mean platelet volume decreased [None]
  - Hot flush [None]
  - Malaise [None]
  - Abdominal pain [None]
  - Anxiety [None]
  - Myalgia [None]
  - Mean cell volume increased [None]
  - Flatulence [None]
  - Irritability [None]
  - Asthenia [None]
  - Blood test [None]

NARRATIVE: CASE EVENT DATE: 201706
